FAERS Safety Report 19037208 (Version 2)
Quarter: 2021Q1

REPORT INFORMATION
  Report Type: Spontaneous
  Country: US (occurrence: US)
  Receive Date: 20210322
  Receipt Date: 20210326
  Transmission Date: 20210420
  Serious: Yes (Hospitalization)
  Sender: FDA-Public Use
  Company Number: US-BEH-2021129737

PATIENT
  Age: 59 Year
  Sex: Female

DRUGS (2)
  1. HIZENTRA [Suspect]
     Active Substance: HUMAN IMMUNOGLOBULIN G
     Dosage: UNK
     Route: 065
     Dates: start: 20200201, end: 20200207
  2. HIZENTRA [Suspect]
     Active Substance: HUMAN IMMUNOGLOBULIN G
     Dosage: UNK
     Route: 065
     Dates: start: 201609

REACTIONS (5)
  - Pneumonia [Unknown]
  - Ear infection [Unknown]
  - Eye infection [Unknown]
  - Insurance issue [Unknown]
  - Sinusitis [Unknown]

NARRATIVE: CASE EVENT DATE: 20200102
